FAERS Safety Report 10102134 (Version 3)
Quarter: 2014Q2

REPORT INFORMATION
  Report Type: Spontaneous
  Country: JP (occurrence: JP)
  Receive Date: 20140424
  Receipt Date: 20140528
  Transmission Date: 20141212
  Serious: Yes (Death, Other)
  Sender: FDA-Public Use
  Company Number: JP-SUCAMPO PHARMA AMERICAS, INC-SPI201400284

PATIENT
  Age: 38 Year
  Sex: Male
  Weight: 53 kg

DRUGS (24)
  1. AMITIZA [Suspect]
     Indication: CONSTIPATION
     Dosage: 24 MCG, QD
     Route: 050
     Dates: start: 20140415, end: 20140415
  2. MUCOSOLVAN [Concomitant]
     Indication: SPUTUM RETENTION
     Dosage: UNK
     Route: 050
  3. ONON [Concomitant]
     Indication: RHINITIS ALLERGIC
     Dosage: 225 MG, BID
     Route: 048
  4. MUCODYNE [Concomitant]
     Indication: SPUTUM RETENTION
     Dosage: 500 MG, TID
     Route: 050
  5. CLARITIN [Concomitant]
     Indication: RHINITIS ALLERGIC
     Dosage: 10 MG, QD
     Route: 050
  6. GASCON [Concomitant]
     Indication: CONSTIPATION
     Dosage: 50 MG, TID
     Route: 050
  7. PANTETHINE [Concomitant]
     Indication: GASTRITIS
     Dosage: 100 MG, TID
     Route: 050
  8. GASMOTIN [Concomitant]
     Indication: GASTRITIS
     Dosage: 5 MG, TID
     Route: 050
  9. UNKNOWN DRUG [Concomitant]
     Indication: CONGESTIVE CARDIOMYOPATHY
     Dosage: UNK
     Route: 050
     Dates: end: 20140421
  10. ARTIST [Concomitant]
     Indication: CONGESTIVE CARDIOMYOPATHY
     Dosage: 5 MG, BID
     Route: 050
  11. TAKEPRON [Concomitant]
     Indication: GASTROOESOPHAGEAL REFLUX DISEASE
     Dosage: 15 MG, QD
     Route: 050
     Dates: start: 2012
  12. SALOBEL [Concomitant]
     Indication: HYPERURICAEMIA
     Dosage: 50 MG, BID
     Route: 050
     Dates: start: 20140407
  13. NEUZYM [Concomitant]
     Indication: SPUTUM RETENTION
     Dosage: 5 ML, TID
     Route: 048
  14. ERYTHROCIN [Concomitant]
     Indication: PNEUMONIA ASPIRATION
     Dosage: 200 MG, TID
     Route: 050
  15. FUROSEMIDE [Concomitant]
     Indication: CARDIAC FAILURE
     Dosage: 20 MG, BID
     Route: 050
  16. ALDACTONE A [Concomitant]
     Indication: CARDIAC FAILURE
     Dosage: 25 MG, BID
     Route: 048
  17. MYSLEE [Concomitant]
     Indication: INSOMNIA
     Dosage: 5 MG, QD
     Route: 050
  18. SENNOSIDE [Concomitant]
     Indication: CONSTIPATION
     Dosage: 12 MG, QD
     Route: 050
  19. UNKNOWN DRUG [Concomitant]
     Indication: RHINITIS ALLERGIC
     Dosage: 1 MG, QD
     Route: 050
  20. UNKNOWN DRUG [Concomitant]
     Indication: CARNITINE DEFICIENCY
     Dosage: UNK
     Route: 050
     Dates: start: 20131106
  21. YOUPIS [Concomitant]
     Indication: CONSTIPATION
     Dosage: 23 GTT, UNK
     Route: 050
  22. LACTULOSE [Concomitant]
     Indication: CONSTIPATION
     Dosage: UNK
     Route: 050
     Dates: start: 20140402
  23. LACTULOSE [Concomitant]
     Indication: HYPERURICAEMIA
  24. GLYCERIN [Concomitant]
     Indication: CONSTIPATION
     Dosage: UNK
     Route: 054

REACTIONS (8)
  - Atrioventricular block complete [Fatal]
  - Blood pressure decreased [Recovering/Resolving]
  - Renal impairment [Recovering/Resolving]
  - Nausea [Recovering/Resolving]
  - Off label use [Not Recovered/Not Resolved]
  - Feeling abnormal [Recovering/Resolving]
  - Hyperuricaemia [Recovering/Resolving]
  - Vision blurred [Unknown]
